FAERS Safety Report 4456084-8 (Version None)
Quarter: 2004Q3

REPORT INFORMATION
  Report Type: 
  Country: None (occurrence: None)
  Receive Date: 20040920
  Receipt Date: 20040913
  Transmission Date: 20050211
  Serious: Yes (Death, Hospitalization, Other)
  Sender: FDA-Public Use
  Company Number: US-JNJFOC-20040903471

PATIENT
  Age: 34 Year
  Sex: Female

DRUGS (1)
  1. TYLENOL (GELTAB) [Suspect]
     Indication: SUICIDE ATTEMPT
     Dosage: 35 G, ORAL
     Route: 048

REACTIONS (13)
  - ANION GAP INCREASED [None]
  - ANTICHOLINERGIC SYNDROME [None]
  - ASPARTATE AMINOTRANSFERASE INCREASED [None]
  - BLOOD BICARBONATE DECREASED [None]
  - BLOOD CREATININE INCREASED [None]
  - BLOOD GLUCOSE DECREASED [None]
  - CHROMATURIA [None]
  - DISORIENTATION [None]
  - DRUG INEFFECTIVE [None]
  - HYPOTENSION [None]
  - OVERDOSE [None]
  - SKIN DISCOLOURATION [None]
  - TACHYCARDIA [None]
